FAERS Safety Report 4632735-X (Version None)
Quarter: 2005Q2

REPORT INFORMATION
  Report Type: 
  Country: None (occurrence: None)
  Receive Date: 20050412
  Receipt Date: 20050406
  Transmission Date: 20051028
  Serious: Yes (Hospitalization)
  Sender: FDA-Public Use
  Company Number: DE-SOLVAY-00205001140

PATIENT
  Age: 33 Year
  Sex: Female
  Weight: 59 kg

DRUGS (4)
  1. IBUPROFEN [Concomitant]
     Indication: ILL-DEFINED DISORDER
     Dosage: DAILY DOSE:  UNKNOWN
     Route: 048
  2. MESALAZINE [MANUFACTURER UNKNOWN] [Suspect]
     Indication: COLITIS ULCERATIVE
     Dosage: DAILY DOSE: 1000 MILLIGRAM(S)
     Route: 048
  3. TETRAZEPAM [Concomitant]
     Indication: ILL-DEFINED DISORDER
     Dosage: DAILY DOSE:  UNKNOWN
     Route: 048
  4. FLUPIRTINE [Concomitant]
     Indication: ILL-DEFINED DISORDER
     Dosage: DAILY DOSE:  UNKNOWN
     Route: 048

REACTIONS (6)
  - COLITIS ISCHAEMIC [None]
  - COLITIS ULCERATIVE [None]
  - MYOCARDITIS [None]
  - PERICARDIAL EFFUSION [None]
  - PNEUMONIA [None]
  - TAKAYASU'S ARTERITIS [None]
